FAERS Safety Report 18628961 (Version 1)
Quarter: 2020Q4

REPORT INFORMATION
  Report Type: Spontaneous
  Country: US (occurrence: US)
  Receive Date: 20201216
  Receipt Date: 20201216
  Transmission Date: 20210114
  Serious: Yes (Hospitalization)
  Sender: FDA-Public Use
  Company Number: None

PATIENT
  Age: 14 Year
  Sex: Male

DRUGS (1)
  1. CUVITRU [Suspect]
     Active Substance: HUMAN IMMUNOGLOBULIN G
     Indication: HYPOGAMMAGLOBULINAEMIA
     Route: 058
     Dates: start: 20180905

REACTIONS (4)
  - Sepsis [None]
  - Multiple organ dysfunction syndrome [None]
  - Right ventricular failure [None]
  - Vascular device infection [None]

NARRATIVE: CASE EVENT DATE: 20201207
